FAERS Safety Report 13177164 (Version 1)
Quarter: 2017Q1

REPORT INFORMATION
  Report Type: Report from Study
  Country: US (occurrence: US)
  Receive Date: 20170201
  Receipt Date: 20170201
  Transmission Date: 20170428
  Serious: No
  Sender: FDA-Public Use
  Company Number: US-EXELIXIS-CABO-16007189

PATIENT
  Sex: Male

DRUGS (1)
  1. CABOMETYX [Suspect]
     Active Substance: CABOZANTINIB S-MALATE
     Indication: RENAL CANCER
     Dosage: 60 MG, QD
     Route: 048
     Dates: start: 20160826

REACTIONS (11)
  - Dysphonia [Not Recovered/Not Resolved]
  - Constipation [Unknown]
  - Diarrhoea [Recovered/Resolved]
  - Cough [Unknown]
  - Choking [Unknown]
  - Retching [Unknown]
  - Asthenia [Not Recovered/Not Resolved]
  - Oral pain [Unknown]
  - Dry mouth [Recovering/Resolving]
  - Arthralgia [Recovered/Resolved]
  - Vomiting [Unknown]
